FAERS Safety Report 4936978-7 (Version None)
Quarter: 2006Q1

REPORT INFORMATION
  Report Type: 
  Country: None (occurrence: None)
  Receive Date: 20060309
  Receipt Date: 20060209
  Transmission Date: 20060701
  Serious: Yes (Hospitalization)
  Sender: FDA-Public Use
  Company Number: FR-ROCHE-435943

PATIENT
  Age: 55 Year
  Sex: Male

DRUGS (18)
  1. ROCEPHIN [Suspect]
     Indication: DRUG USE FOR UNKNOWN INDICATION
     Route: 048
     Dates: start: 20050930, end: 20051004
  2. TEGRETOL [Suspect]
     Indication: EPILEPSY
     Route: 048
     Dates: start: 20050924, end: 20051006
  3. SUCRALFATE [Concomitant]
  4. PERFALGAN [Concomitant]
  5. STILNOX [Concomitant]
  6. ZYRTEC [Concomitant]
  7. TRANXENE [Concomitant]
  8. RIVOTRIL [Concomitant]
     Dosage: STOPPED MORE THEN TEN DAYS BEFORE THE ERUPTION.
  9. GARDENAL [Concomitant]
     Dosage: STOPPED MORE THEN TEN DAYS BEFORE THE ERUPTION.
  10. AUGMENTIN '125' [Concomitant]
     Dosage: STOPPED MORE THEN TEN DAYS BEFORE THE ERUPTION.
  11. VITAMIN K [Concomitant]
     Dosage: STOPPED MORE THEN TEN DAYS BEFORE THE ERUPTION.
  12. PENTOTHAL [Concomitant]
     Dosage: STOPPED MORE THEN TEN DAYS BEFORE THE ERUPTION.
  13. HYPNOVEL [Concomitant]
     Dosage: STOPPED MORE THEN TEN DAYS BEFORE THE ERUPTION.
  14. VITAMIN PP [Concomitant]
  15. THIAMINE HCL [Concomitant]
     Dosage: STOPPED MORE THEN TEN DAYS BEFORE THE ERUPTION.
  16. VITAMIN B6 [Concomitant]
     Dosage: STOPPED MORE THEN TEN DAYS BEFORE THE ERUPTION.
  17. CLAFORAN [Concomitant]
     Dosage: STOPPED MORE THEN TEN DAYS BEFORE THE ERUPTION.
  18. XATRAL [Concomitant]
     Dosage: STOPPED MORE THEN TEN DAYS BEFORE THE ERUPTION.

REACTIONS (1)
  - TOXIC SKIN ERUPTION [None]
